FAERS Safety Report 18268904 (Version 1)
Quarter: 2020Q3

REPORT INFORMATION
  Report Type: Spontaneous
  Country: US (occurrence: US)
  Receive Date: 20200915
  Receipt Date: 20200915
  Transmission Date: 20201103
  Serious: Yes (Other)
  Sender: FDA-Public Use
  Company Number: US-BEXIMCO-2020BEX00088

PATIENT
  Sex: Female

DRUGS (2)
  1. METFORMIN HYDROCHLORIDE. [Suspect]
     Active Substance: METFORMIN HYDROCHLORIDE
     Dosage: UNK
  2. RANITIDINE (STRIDES PHARMA SCIENCE LIMITED) [Suspect]
     Active Substance: RANITIDINE

REACTIONS (6)
  - Helicobacter infection [Recovered/Resolved]
  - Unevaluable event [Not Recovered/Not Resolved]
  - Gastritis [Recovered/Resolved]
  - Recalled product administered [Unknown]
  - Diarrhoea [Not Recovered/Not Resolved]
  - Large intestine polyp [Recovered/Resolved]

NARRATIVE: CASE EVENT DATE: 2018
